FAERS Safety Report 21899012 (Version 1)
Quarter: 2023Q1

REPORT INFORMATION
  Report Type: Spontaneous
  Country: US (occurrence: US)
  Receive Date: 20230123
  Receipt Date: 20230123
  Transmission Date: 20230418
  Serious: Yes (Other)
  Sender: FDA-Public Use
  Company Number: US-MYLANLABS-2023M1006817

PATIENT

DRUGS (2)
  1. XANAX [Suspect]
     Active Substance: ALPRAZOLAM
     Indication: Product used for unknown indication
     Dosage: 1 MILLIGRAM
     Route: 065
  2. PAXLOVID [Suspect]
     Active Substance: NIRMATRELVIR\RITONAVIR
     Indication: COVID-19
     Dosage: UNK (TAKING ONE IN THE MORNING, ONE IN THE AFTERNOON AND ONE AT NIGHT)
     Route: 065

REACTIONS (5)
  - Near death experience [Unknown]
  - Crying [Unknown]
  - Adverse drug reaction [Unknown]
  - Somnolence [Unknown]
  - Dizziness [Unknown]
